FAERS Safety Report 6949214-7 (Version None)
Quarter: 2010Q3

REPORT INFORMATION
  Report Type: 
  Country: None (occurrence: None)
  Receive Date: 20100828
  Receipt Date: 20091207
  Transmission Date: 20110219
  Serious: No
  Sender: FDA-Public Use
  Company Number: US-ABBOTT-09P-163-0614045-00

PATIENT
  Sex: Female
  Weight: 63.56 kg

DRUGS (12)
  1. NIASPAN [Suspect]
     Indication: BLOOD CHOLESTEROL INCREASED
     Dates: start: 20091101
  2. LEVOTHROID [Concomitant]
     Indication: HYPOTHYROIDISM
  3. NORVASC [Concomitant]
     Indication: HYPERTENSION
  4. DAYTROL [Concomitant]
     Indication: URINARY INCONTINENCE
  5. LASIX [Concomitant]
     Indication: JOINT SWELLING
  6. POTASSIUM CHLORIDE [Concomitant]
     Indication: ELECTROLYTE SUBSTITUTION THERAPY
  7. COENZYME Q10 [Concomitant]
     Indication: ROUTINE HEALTH MAINTENANCE
  8. NO DOZE [Concomitant]
     Indication: FATIGUE
  9. SUPER B COMPLEX [Concomitant]
     Indication: VITAMIN SUPPLEMENTATION
  10. CALCIUM CITRATE [Concomitant]
     Indication: OSTEOPOROSIS
  11. VAGIFEM [Concomitant]
     Indication: PRODUCT USED FOR UNKNOWN INDICATION
  12. RECLAST [Concomitant]
     Indication: OSTEOPOROSIS

REACTIONS (2)
  - BALANCE DISORDER [None]
  - FLUSHING [None]
